FAERS Safety Report 7330223-3 (Version None)
Quarter: 2011Q1

REPORT INFORMATION
  Report Type: 
  Country: None (occurrence: None)
  Receive Date: 20110303
  Receipt Date: 20110119
  Transmission Date: 20110831
  Serious: Yes (Other)
  Sender: FDA-Public Use
  Company Number: US-BAXTER-2010BH026011

PATIENT
  Age: 14 Year
  Sex: Female
  Weight: 58 kg

DRUGS (30)
  1. HEPARIN SODIUM INJECTION [Suspect]
     Route: 042
     Dates: start: 20080212, end: 20080212
  2. HEPARIN SODIUM INJECTION [Suspect]
     Route: 042
     Dates: start: 20070129, end: 20070129
  3. HEPARIN SODIUM INJECTION [Suspect]
     Route: 042
     Dates: start: 20080103, end: 20080103
  4. HEPARIN SODIUM INJECTION [Suspect]
     Route: 042
     Dates: start: 20080108, end: 20080108
  5. HEPARIN SODIUM INJECTION [Suspect]
     Route: 042
     Dates: start: 20080205, end: 20080205
  6. LOVENOX [Concomitant]
     Indication: PRODUCT USED FOR UNKNOWN INDICATION
     Route: 065
  7. HEPARIN SODIUM INJECTION [Suspect]
     Indication: ASPIRATION BONE MARROW
     Route: 042
     Dates: start: 20071119, end: 20071119
  8. HEPARIN SODIUM INJECTION [Suspect]
     Route: 042
     Dates: start: 20080226, end: 20080226
  9. HEPARIN SODIUM INJECTION [Suspect]
     Route: 042
     Dates: start: 20080226, end: 20080226
  10. NEUPOGEN [Concomitant]
     Indication: PRODUCT USED FOR UNKNOWN INDICATION
     Route: 065
  11. BACTRIM [Concomitant]
     Indication: PRODUCT USED FOR UNKNOWN INDICATION
     Route: 048
  12. HEPARIN SODIUM INJECTION [Suspect]
     Indication: CENTRAL VENOUS CATHETERISATION
     Route: 042
     Dates: start: 20071119, end: 20071119
  13. HEPARIN SODIUM INJECTION [Suspect]
     Route: 042
     Dates: start: 20071221, end: 20071221
  14. HEPARIN SODIUM INJECTION [Suspect]
     Route: 042
     Dates: start: 20080108, end: 20080108
  15. HEPARIN SODIUM INJECTION [Suspect]
     Route: 042
     Dates: start: 20080212, end: 20080212
  16. HEPARIN SODIUM INJECTION [Suspect]
     Route: 042
     Dates: start: 20080219, end: 20080219
  17. HEPARIN SODIUM INJECTION [Suspect]
     Route: 042
     Dates: start: 20080115, end: 20080115
  18. HEPARIN SODIUM INJECTION [Suspect]
     Route: 042
     Dates: start: 20080129, end: 20080129
  19. HEPARIN SODIUM INJECTION [Suspect]
     Route: 042
     Dates: start: 20080129, end: 20080129
  20. HEPARIN SODIUM INJECTION [Suspect]
     Route: 042
     Dates: start: 20080205, end: 20080205
  21. HEPARIN SODIUM INJECTION [Suspect]
     Route: 042
     Dates: start: 20080219, end: 20080219
  22. HYDROMORPHONE [Suspect]
     Indication: PRODUCT USED FOR UNKNOWN INDICATION
     Route: 065
  23. HEPARIN SODIUM INJECTION (TYCO HEALTHCARE) [Suspect]
     Indication: CENTRAL VENOUS CATHETERISATION
     Route: 042
     Dates: start: 20070706, end: 20070929
  24. DIFLUCAN [Concomitant]
     Indication: PRODUCT USED FOR UNKNOWN INDICATION
     Route: 065
  25. HEPARIN SODIUM INJECTION [Suspect]
     Route: 042
     Dates: start: 20080103, end: 20080103
  26. HEPARIN SODIUM INJECTION [Suspect]
     Route: 042
     Dates: start: 20080115, end: 20080115
  27. OTHER CHEMOTHERAPEUTICS [Concomitant]
     Indication: PRODUCT USED FOR UNKNOWN INDICATION
     Route: 065
  28. HEPARIN SODIUM INJECTION [Suspect]
     Route: 042
     Dates: start: 20071221, end: 20071221
  29. HEPARIN SODIUM INJECTION [Suspect]
     Route: 042
     Dates: start: 20070129, end: 20070129
  30. VANCOMYCIN HCL [Suspect]
     Indication: PRODUCT USED FOR UNKNOWN INDICATION
     Route: 065

REACTIONS (37)
  - HAEMORRHAGE [None]
  - THROMBOCYTOPENIA [None]
  - RED MAN SYNDROME [None]
  - PYREXIA [None]
  - COUGH [None]
  - OROPHARYNGEAL PAIN [None]
  - VOMITING [None]
  - SKIN EXFOLIATION [None]
  - ACUTE MYELOID LEUKAEMIA [None]
  - MENTAL STATUS CHANGES [None]
  - MUCOSAL INFLAMMATION [None]
  - MENORRHAGIA [None]
  - DYSPHAGIA [None]
  - ANAEMIA [None]
  - HYPOTENSION [None]
  - HYPERTENSION [None]
  - DECREASED APPETITE [None]
  - NAUSEA [None]
  - HEADACHE [None]
  - ANGIOEDEMA [None]
  - NEUTROPENIA [None]
  - HAEMATEMESIS [None]
  - HAEMORRHAGIC DISORDER [None]
  - FATIGUE [None]
  - VENOUS THROMBOSIS [None]
  - SUBCLAVIAN VEIN THROMBOSIS [None]
  - LIP SWELLING [None]
  - PAIN [None]
  - DYSPEPSIA [None]
  - SKIN DISCOLOURATION [None]
  - TACHYCARDIA [None]
  - CHILLS [None]
  - UNRESPONSIVE TO STIMULI [None]
  - LEUKOCYTOSIS [None]
  - RASH [None]
  - ABDOMINAL PAIN [None]
  - DIARRHOEA [None]
